FAERS Safety Report 8746277 (Version 3)
Quarter: 2012Q4

REPORT INFORMATION
  Report Type: 
  Country: US (occurrence: US)
  Receive Date: 20120827
  Receipt Date: 20121030
  Transmission Date: 20130627
  Serious: No
  Sender: FDA-Public Use
  Company Number: US-009507513-1208USA003267

PATIENT
  Age: 71 Year
  Sex: Female

DRUGS (2)
  1. AZASITE [Suspect]
     Indication: CONJUNCTIVITIS BACTERIAL
     Dosage: 1 Gtt, qd
     Route: 047
     Dates: start: 20120628
  2. AZASITE [Suspect]
     Indication: EYE INFLAMMATION

REACTIONS (4)
  - Incorrect drug administration duration [Unknown]
  - Product quality issue [Unknown]
  - Drug dose omission [Unknown]
  - No adverse event [Unknown]
